FAERS Safety Report 9302082 (Version 1)
Quarter: 2013Q2

REPORT INFORMATION
  Report Type: Spontaneous
  Country: CA (occurrence: CA)
  Receive Date: 20130521
  Receipt Date: 20130521
  Transmission Date: 20140414
  Serious: Yes (Death, Hospitalization)
  Sender: FDA-Public Use
  Company Number: CA-B.I. PHARMACEUTICALS,INC./RIDGEFIELD-2013-CN-00919CN

PATIENT
  Age: 72 Year
  Sex: Male

DRUGS (7)
  1. PRADAXA [Suspect]
     Indication: ATRIAL FIBRILLATION
     Dosage: 300 MG
  2. PREDNISONE [Concomitant]
  3. FUROSEMIDE [Concomitant]
  4. ALDACTONE [Concomitant]
  5. LIPITOR [Concomitant]
  6. SYNTHROID [Concomitant]
  7. AMIODARONE [Concomitant]

REACTIONS (2)
  - Haemorrhage intracranial [Fatal]
  - Fall [Unknown]
